FAERS Safety Report 10717223 (Version 1)
Quarter: 2015Q1

REPORT INFORMATION
  Report Type: Spontaneous
  Country: US (occurrence: US)
  Receive Date: 20150116
  Receipt Date: 20150116
  Transmission Date: 20150721
  Serious: No
  Sender: FDA-Public Use
  Company Number: US-ENDO PHARMACEUTICALS INC.-HCDA20140005

PATIENT
  Sex: Female
  Weight: 78.09 kg

DRUGS (2)
  1. LIDODERM [Suspect]
     Active Substance: LIDOCAINE
     Indication: DIABETIC NEUROPATHY
     Dosage: UNK
     Route: 061
  2. HYDROCODONE BITARTRATE AND ACETAMINOPHEN [Suspect]
     Active Substance: ACETAMINOPHEN\HYDROCODONE BITARTRATE
     Indication: DIABETIC NEUROPATHY
     Route: 048
     Dates: start: 2012, end: 201311

REACTIONS (3)
  - Drug ineffective [Recovered/Resolved]
  - Hypoaesthesia [Recovered/Resolved]
  - Pain in extremity [Recovered/Resolved]

NARRATIVE: CASE EVENT DATE: 2013
